FAERS Safety Report 10821402 (Version 2)
Quarter: 2015Q1

REPORT INFORMATION
  Report Type: Other
  Country: US (occurrence: US)
  Receive Date: 20150218
  Receipt Date: 20150330
  Transmission Date: 20150721
  Serious: Yes (Hospitalization)
  Sender: FDA-Public Use
  Company Number: US-ACORDA-ACO_108897_2015

PATIENT
  Sex: Female

DRUGS (1)
  1. AMPYRA [Suspect]
     Active Substance: DALFAMPRIDINE
     Indication: PRODUCT USED FOR UNKNOWN INDICATION
     Dosage: 10 MG, UNK
     Route: 065
     Dates: start: 20120524

REACTIONS (8)
  - Drug dose omission [Unknown]
  - Pain [Unknown]
  - Dehydration [Unknown]
  - Urinary tract infection [Unknown]
  - Speech rehabilitation [Unknown]
  - Dysstasia [Unknown]
  - Fear [Unknown]
  - Activities of daily living impaired [Unknown]
